FAERS Safety Report 19034908 (Version 2)
Quarter: 2022Q2

REPORT INFORMATION
  Report Type: Spontaneous
  Country: CA (occurrence: CA)
  Receive Date: 20210320
  Receipt Date: 20220524
  Transmission Date: 20220721
  Serious: Yes (Other)
  Sender: FDA-Public Use
  Company Number: CA-ACCORD-218663

PATIENT
  Age: 4 Year
  Sex: Male

DRUGS (4)
  1. METHOTREXATE [Suspect]
     Active Substance: METHOTREXATE
     Indication: Dermatomyositis
  2. PREDNISONE [Concomitant]
     Active Substance: PREDNISONE
     Indication: Dermatomyositis
  3. CALCIUM [Concomitant]
     Active Substance: CALCIUM
     Indication: Osteoporosis prophylaxis
     Route: 065
  4. VITAMIN D [Concomitant]
     Active Substance: VITAMIN D NOS
     Indication: Vitamin supplementation
     Route: 065

REACTIONS (6)
  - Medial tibial stress syndrome [Recovering/Resolving]
  - Off label use [Unknown]
  - Osteopenia [Recovering/Resolving]
  - Therapeutic response decreased [Unknown]
  - Bone marrow oedema [Unknown]
  - Skeletal injury [Unknown]
